FAERS Safety Report 23972990 (Version 2)
Quarter: 2024Q2

REPORT INFORMATION
  Report Type: Spontaneous
  Country: PH (occurrence: PH)
  Receive Date: 20240613
  Receipt Date: 20240624
  Transmission Date: 20240716
  Serious: Yes (Hospitalization, Other)
  Sender: FDA-Public Use
  Company Number: PH-SA-SAC20240610000804

PATIENT

DRUGS (1)
  1. LARONIDASE [Suspect]
     Active Substance: LARONIDASE
     Indication: Mucopolysaccharidosis I
     Dosage: 0.58MK, QW
     Route: 065
     Dates: start: 2013

REACTIONS (15)
  - Incarcerated inguinal hernia [Unknown]
  - Small intestinal obstruction [Unknown]
  - Ileal gangrene [Unknown]
  - Hydrocephalus [Unknown]
  - Headache [Unknown]
  - Intracranial pressure increased [Unknown]
  - Open globe injury [Unknown]
  - Postoperative abscess [Unknown]
  - Infective keratitis [Unknown]
  - Exposure keratitis [Unknown]
  - Uveal prolapse [Unknown]
  - Mitral valve stenosis [Unknown]
  - Mitral valve incompetence [Unknown]
  - Left ventricular hypertrophy [Unknown]
  - Left ventricular enlargement [Unknown]

NARRATIVE: CASE EVENT DATE: 20180101
